FAERS Safety Report 7350899-4 (Version None)
Quarter: 2011Q1

REPORT INFORMATION
  Report Type: 
  Country: None (occurrence: None)
  Receive Date: 20110314
  Receipt Date: 20110303
  Transmission Date: 20110831
  Serious: Yes (Hospitalization)
  Sender: FDA-Public Use
  Company Number: US-JNJFOC-20110303273

PATIENT
  Sex: Male
  Weight: 57.3 kg

DRUGS (4)
  1. INFLIXIMAB, RECOMBINANT [Suspect]
     Indication: CROHN'S DISEASE
     Route: 042
  2. INFLIXIMAB, RECOMBINANT [Suspect]
     Route: 042
  3. ANTIBIOTICS [Concomitant]
     Indication: INFLAMMATORY BOWEL DISEASE
  4. METHOTREXATE [Concomitant]

REACTIONS (1)
  - ABDOMINAL PAIN [None]
